FAERS Safety Report 6115130-6 (Version None)
Quarter: 2009Q1

REPORT INFORMATION
  Report Type: 
  Country: None (occurrence: None)
  Receive Date: 20090313
  Receipt Date: 20090303
  Transmission Date: 20090719
  Serious: Yes (Other)
  Sender: FDA-Public Use
  Company Number: CN-PFIZER INC-2009165187

PATIENT

DRUGS (3)
  1. NORVASC [Suspect]
     Indication: HYPERTENSION
     Dosage: 20 MG, 1X/DAY
     Route: 048
  2. NORVASC [Interacting]
     Dosage: 10 MG, 1X/DAY
     Route: 048
  3. ANTIFUNGALS [Interacting]

REACTIONS (2)
  - DRUG INTERACTION [None]
  - OEDEMA [None]
